FAERS Safety Report 7101528-6 (Version None)
Quarter: 2010Q4

REPORT INFORMATION
  Report Type: 
  Country: None (occurrence: None)
  Receive Date: 20101115
  Receipt Date: 20101111
  Transmission Date: 20110411
  Serious: Yes (Death, Hospitalization, Other)
  Sender: FDA-Public Use
  Company Number: PHHO2010US06004

PATIENT
  Sex: Male
  Weight: 80 kg

DRUGS (4)
  1. EXELON [Suspect]
     Indication: DEMENTIA ALZHEIMER'S TYPE
     Dosage: UNK
     Route: 062
     Dates: start: 20100223, end: 20100331
  2. MEMANTINE [Concomitant]
     Indication: DEMENTIA ALZHEIMER'S TYPE
  3. CRESTOR [Concomitant]
     Indication: CORONARY ARTERY DISEASE
  4. ASPIRIN [Concomitant]

REACTIONS (31)
  - ADRENAL MASS [None]
  - AORTIC CALCIFICATION [None]
  - AORTIC DILATATION [None]
  - ASTHENIA [None]
  - ATELECTASIS [None]
  - BLADDER ADENOCARCINOMA STAGE UNSPECIFIED [None]
  - BLADDER CATHETERISATION [None]
  - BLADDER DISORDER [None]
  - BLADDER MASS [None]
  - BLADDER OBSTRUCTION [None]
  - DECREASED APPETITE [None]
  - DEHYDRATION [None]
  - HEPATIC LESION [None]
  - HIATUS HERNIA [None]
  - HYDRONEPHROSIS [None]
  - HYPERADRENALISM [None]
  - HYPERKALAEMIA [None]
  - HYPERNATRAEMIA [None]
  - HYPERTENSION [None]
  - HYPERTENSIVE NEPHROPATHY [None]
  - HYPOTENSION [None]
  - LYMPHADENOPATHY MEDIASTINAL [None]
  - METASTASES TO BONE [None]
  - METASTASES TO LIVER [None]
  - NEPHROSTOMY [None]
  - RENAL CYST [None]
  - RENAL FAILURE ACUTE [None]
  - SPONDYLITIS [None]
  - VASODILATATION [None]
  - VOMITING [None]
  - WEIGHT DECREASED [None]
